FAERS Safety Report 9143463 (Version 2)
Quarter: 2013Q2

REPORT INFORMATION
  Report Type: Spontaneous
  Country: BR (occurrence: BR)
  Receive Date: 20130306
  Receipt Date: 20130408
  Transmission Date: 20140414
  Serious: Yes (Other)
  Sender: FDA-Public Use
  Company Number: PHHY2012BR037666

PATIENT
  Age: 33 Year
  Sex: Female

DRUGS (2)
  1. FORASEQ [Suspect]
     Indication: COUGH
     Dosage: 1 DF, (1 CAPSULE OF THE TREATMENT 2 IN THE MORNING AND 1 CAPSULE OF THE TREATMENT 2 AT NIGHT)
     Dates: end: 201209
  2. MIFLONIDE [Concomitant]
     Dosage: UNK UKN, UNK

REACTIONS (9)
  - Placental disorder [Not Recovered/Not Resolved]
  - Bronchial hyperreactivity [Recovered/Resolved]
  - Cough [Recovered/Resolved]
  - Dyspepsia [Not Recovered/Not Resolved]
  - Back pain [Not Recovered/Not Resolved]
  - Nausea [Recovered/Resolved]
  - Headache [Not Recovered/Not Resolved]
  - Rhinitis [Recovered/Resolved]
  - Maternal exposure during pregnancy [Unknown]
